FAERS Safety Report 6750634-4 (Version None)
Quarter: 2010Q2

REPORT INFORMATION
  Report Type: 
  Country: None (occurrence: None)
  Receive Date: 20100602
  Receipt Date: 20100521
  Transmission Date: 20101027
  Serious: Yes (Other)
  Sender: FDA-Public Use
  Company Number: JP-ROCHE-703915

PATIENT
  Sex: Female

DRUGS (3)
  1. AVASTIN [Suspect]
     Indication: LUNG ADENOCARCINOMA
     Route: 041
     Dates: start: 20091118, end: 20100303
  2. CISPLATIN [Suspect]
     Indication: LUNG ADENOCARCINOMA
     Dosage: DOSAGE WAS UNCERTAIN
     Route: 041
     Dates: start: 20091118, end: 20091209
  3. ALIMTA [Suspect]
     Indication: LUNG ADENOCARCINOMA
     Dosage: DOSAGE WAS UNCERTAIN GENERIC REPORTED AS PEMETREXED SODIUM HYDRATE
     Route: 041
     Dates: start: 20091118, end: 20100303

REACTIONS (1)
  - RENAL DISORDER [None]
